FAERS Safety Report 10524837 (Version 1)
Quarter: 2014Q4

REPORT INFORMATION
  Report Type: Spontaneous
  Country: US (occurrence: US)
  Receive Date: 20141017
  Receipt Date: 20141017
  Transmission Date: 20150528
  Serious: Yes (Other)
  Sender: FDA-Public Use
  Company Number: US-PFIZER INC-2014284368

PATIENT
  Age: 86 Year
  Sex: Female
  Weight: 47.62 kg

DRUGS (3)
  1. CALCIUM [Concomitant]
     Active Substance: CALCIUM
     Dosage: UNK
  2. ADVIL [Suspect]
     Active Substance: IBUPROFEN
     Indication: LIGAMENT SPRAIN
     Dosage: 2 DF, 3X/DAY(ADVIL IN THE MORNING, TWO TABLETS AT LUNCH, AND TWO TABLETS AT DINNER)
     Route: 048
     Dates: start: 2014
  3. ADVIL [Suspect]
     Active Substance: IBUPROFEN
     Dosage: 1 DF, 3X/DAY(ONE TABLET IN THE AM, ONE TABLET IN THE AFTERNOON, AND ONE TABLET AT NIGHT)
     Route: 048
     Dates: start: 2014

REACTIONS (2)
  - Headache [Unknown]
  - Blood pressure increased [Not Recovered/Not Resolved]

NARRATIVE: CASE EVENT DATE: 2014
